FAERS Safety Report 4951315-X (Version None)
Quarter: 2006Q1

REPORT INFORMATION
  Report Type: 
  Country: None (occurrence: None)
  Receive Date: 20060317
  Receipt Date: 20060309
  Transmission Date: 20060701
  Serious: Yes (Hospitalization, Other)
  Sender: FDA-Public Use
  Company Number: 2006-03-0479

PATIENT
  Age: 60 Year
  Sex: Male
  Weight: 106 kg

DRUGS (1)
  1. CELESTENE         (BETAMETHASONE SODIUM PHOSPHATE) [Suspect]

REACTIONS (10)
  - ASTHENIA [None]
  - BLOOD GLUCOSE INCREASED [None]
  - BONE PAIN [None]
  - CUSHING'S SYNDROME [None]
  - ECCHYMOSIS [None]
  - ERYTHROSIS [None]
  - INCREASED TENDENCY TO BRUISE [None]
  - MINERAL METABOLISM DISORDER [None]
  - ORAL CANDIDIASIS [None]
  - VESSEL PUNCTURE SITE BRUISE [None]
